FAERS Safety Report 5584736-5 (Version None)
Quarter: 2008Q1

REPORT INFORMATION
  Report Type: 
  Country: None (occurrence: None)
  Receive Date: 20080108
  Receipt Date: 20071227
  Transmission Date: 20080703
  Serious: Yes (Other)
  Sender: FDA-Public Use
  Company Number: US-PFIZER INC-2008000341

PATIENT
  Sex: Male
  Weight: 64.545 kg

DRUGS (1)
  1. CHANTIX [Suspect]
     Indication: SMOKING CESSATION THERAPY

REACTIONS (3)
  - DYSPHAGIA [None]
  - NASAL OPERATION [None]
  - OROPHARYNGEAL BLISTERING [None]
